FAERS Safety Report 23779028 (Version 1)
Quarter: 2024Q2

REPORT INFORMATION
  Report Type: Spontaneous
  Country: US (occurrence: US)
  Receive Date: 20240424
  Receipt Date: 20240424
  Transmission Date: 20240716
  Serious: Yes (Hospitalization, Other)
  Sender: FDA-Public Use
  Company Number: US-BAYER-2024A061306

PATIENT
  Age: 28 Year
  Sex: Female

DRUGS (4)
  1. ASPIRIN [Suspect]
     Active Substance: ASPIRIN
     Dosage: UNK
     Dates: start: 20221118, end: 20230308
  2. TRI-LO-SPRINTEC [Concomitant]
     Active Substance: ETHINYL ESTRADIOL\NORGESTIMATE
     Indication: Oral contraception
     Dosage: UNK
     Route: 048
     Dates: start: 1999
  3. IBUPROFEN [Concomitant]
     Active Substance: IBUPROFEN
     Indication: Pain
     Route: 048
  4. COLCHICINE [Concomitant]
     Active Substance: COLCHICINE

REACTIONS (6)
  - Pain [None]
  - Pain [None]
  - Angina pectoris [None]
  - Pain [None]
  - Pain [None]
  - Adverse drug reaction [None]

NARRATIVE: CASE EVENT DATE: 20221126
